FAERS Safety Report 11030090 (Version 1)
Quarter: 2015Q2

REPORT INFORMATION
  Report Type: Spontaneous
  Country: US (occurrence: None)
  Receive Date: 20150414
  Receipt Date: 20150414
  Transmission Date: 20150821
  Serious: No
  Sender: FDA-Public Use
  Company Number: None

PATIENT
  Age: 80 Year
  Sex: Male

DRUGS (13)
  1. CHLORTHALIDONE. [Concomitant]
     Active Substance: CHLORTHALIDONE
  2. AMNLODIOINE [Concomitant]
  3. KENALOG [Concomitant]
     Active Substance: TRIAMCINOLONE ACETONIDE
  4. CALCIUM [Concomitant]
     Active Substance: CALCIUM
  5. AVODART [Concomitant]
     Active Substance: DUTASTERIDE
  6. CALCIUM [Concomitant]
     Active Substance: CALCIUM
  7. ZYTIGA [Suspect]
     Active Substance: ABIRATERONE ACETATE
     Indication: PROSTATE CANCER
     Dosage: 250 MG, DAILY, ORAL
     Route: 048
     Dates: start: 20130111
  8. ASPIRIN. [Concomitant]
     Active Substance: ASPIRIN
  9. MAGNESIUM [Concomitant]
     Active Substance: MAGNESIUM
  10. VITAMIN D [Concomitant]
     Active Substance: CHOLECALCIFEROL
  11. GLUCOSAMINE [Concomitant]
     Active Substance: GLUCOSAMINE
  12. ALOR [Concomitant]
     Active Substance: FLUOCINOLONE ACETONIDE
  13. LUPRON [Concomitant]
     Active Substance: LEUPROLIDE ACETATE

REACTIONS (1)
  - Dyspnoea [None]

NARRATIVE: CASE EVENT DATE: 20150413
